FAERS Safety Report 4563707-1 (Version None)
Quarter: 2005Q1

REPORT INFORMATION
  Report Type: 
  Country: None (occurrence: None)
  Receive Date: 20050128
  Receipt Date: 20041130
  Transmission Date: 20050727
  Serious: Yes (Other)
  Sender: FDA-Public Use
  Company Number: PHBS2004NO16149

PATIENT
  Age: 61 Year
  Sex: Male

DRUGS (5)
  1. GLEEVEC [Suspect]
     Indication: CHRONIC MYELOID LEUKAEMIA
     Dosage: 300-400 MG/DAY
     Route: 048
     Dates: start: 20040701
  2. GLEEVEC [Suspect]
     Dosage: 300 MG/D
     Route: 065
     Dates: start: 20040720
  3. GLEEVEC [Suspect]
     Dosage: UNK, UNK
     Route: 065
     Dates: start: 20040817, end: 20041102
  4. ADALAT OROS [Concomitant]
     Indication: HYPERTENSION
     Dosage: 60 MG/D
     Route: 048
  5. RENITEC [Concomitant]
     Indication: HYPERTENSION
     Dosage: 20 MG/D
     Route: 048

REACTIONS (11)
  - BONE MARROW DEPRESSION [None]
  - BONE MARROW DISORDER [None]
  - CONJUNCTIVAL HAEMORRHAGE [None]
  - HAEMOGLOBIN DECREASED [None]
  - NEUTROPHIL COUNT DECREASED [None]
  - OESOPHAGEAL CANDIDIASIS [None]
  - PANCYTOPENIA [None]
  - PLATELET COUNT DECREASED [None]
  - SCLERAL HAEMORRHAGE [None]
  - SINUSITIS [None]
  - WHITE BLOOD CELL COUNT DECREASED [None]
